FAERS Safety Report 8114265-6 (Version None)
Quarter: 2012Q1

REPORT INFORMATION
  Report Type: 
  Country: None (occurrence: None)
  Receive Date: 20120206
  Receipt Date: 20120125
  Transmission Date: 20120608
  Serious: Yes (Hospitalization, Other)
  Sender: FDA-Public Use
  Company Number: US-BIOGENIDEC-2011BI047870

PATIENT
  Age: 37 Year
  Sex: Male

DRUGS (1)
  1. TYSABRI [Suspect]
     Indication: MULTIPLE SCLEROSIS
     Route: 042
     Dates: start: 20100223, end: 20110928

REACTIONS (6)
  - RENAL MASS [None]
  - RENAL FAILURE ACUTE [None]
  - NEUROPATHY PERIPHERAL [None]
  - CARPAL TUNNEL SYNDROME [None]
  - RESPIRATORY FAILURE [None]
  - POST PROCEDURAL INFECTION [None]
